FAERS Safety Report 11814678 (Version 5)
Quarter: 2017Q2

REPORT INFORMATION
  Report Type: Spontaneous
  Country: JP (occurrence: JP)
  Receive Date: 20151209
  Receipt Date: 20170516
  Transmission Date: 20170829
  Serious: Yes (Hospitalization, Other)
  Sender: FDA-Public Use
  Company Number: JP-AMGEN-JPNSP2015131388

PATIENT
  Age: 67 Year
  Sex: Female
  Weight: 57 kg

DRUGS (9)
  1. ZOMETA [Suspect]
     Active Substance: ZOLEDRONIC ACID
     Indication: METASTASES TO BONE
     Dosage: 3.5 MG, UNK
     Route: 041
     Dates: start: 20100609, end: 20130905
  2. CRESTOR [Concomitant]
     Active Substance: ROSUVASTATIN CALCIUM
     Indication: HYPERLIPIDAEMIA
     Dosage: 2.5 MG, QD
     Route: 048
     Dates: start: 20160607
  3. RANMARK [Suspect]
     Active Substance: DENOSUMAB
     Indication: BREAST CANCER
  4. DEPAS [Concomitant]
     Active Substance: ETIZOLAM
     Dosage: 1 MG, TID
     Route: 048
  5. LOXONIN-60 [Concomitant]
     Dosage: 60 MG, TID
     Route: 048
  6. FASLODEX [Concomitant]
     Active Substance: FULVESTRANT
     Indication: BREAST CANCER
     Dosage: 500 MG, QD
     Route: 030
     Dates: start: 20130905
  7. RANMARK [Suspect]
     Active Substance: DENOSUMAB
     Indication: METASTASES TO BONE
     Dosage: 120 MG, Q4WK
     Route: 058
     Dates: start: 20131003, end: 20150827
  8. ETIZOLAM [Concomitant]
     Active Substance: ETIZOLAM
     Dosage: 0.5 MG, TID
     Route: 048
     Dates: start: 20160607
  9. MOHRUS [Concomitant]
     Active Substance: KETOPROFEN
     Dosage: UNK
     Route: 050

REACTIONS (2)
  - Atypical femur fracture [Recovering/Resolving]
  - Atypical femur fracture [Recovering/Resolving]

NARRATIVE: CASE EVENT DATE: 20150827
